FAERS Safety Report 8921050 (Version 2)
Quarter: 2013Q1

REPORT INFORMATION
  Report Type: Report from Study
  Country: CA (occurrence: CA)
  Receive Date: 20121122
  Receipt Date: 20130123
  Transmission Date: 20140127
  Serious: Yes (Death, Hospitalization)
  Sender: FDA-Public Use
  Company Number: CA-ROCHE-1155192

PATIENT
  Age: 69 None
  Sex: Male

DRUGS (14)
  1. VEMURAFENIB [Suspect]
     Indication: METASTATIC MALIGNANT MELANOMA
     Route: 048
     Dates: start: 2012, end: 201211
  2. TYLENOL [Concomitant]
     Route: 065
  3. MORPHINE [Concomitant]
     Route: 065
  4. FUROSEMIDE [Concomitant]
     Route: 065
  5. PLAVIX [Concomitant]
     Route: 065
  6. ALLOPURINOL [Concomitant]
     Route: 065
  7. CARVEDILOL [Concomitant]
     Route: 065
  8. RANITIDINE [Concomitant]
  9. AMLODIPINE [Concomitant]
     Route: 065
  10. RAMIPRIL [Concomitant]
     Route: 065
  11. WARFARIN [Concomitant]
     Route: 065
  12. LANOXIN [Concomitant]
     Route: 065
  13. ROSUVASTATIN [Concomitant]
     Route: 065
  14. VITAMIN B12 [Concomitant]

REACTIONS (4)
  - Disease progression [Fatal]
  - Asthenia [Unknown]
  - Gait disturbance [Unknown]
  - Fatigue [Unknown]
